FAERS Safety Report 7378342-X (Version None)
Quarter: 2011Q1

REPORT INFORMATION
  Report Type: 
  Country: None (occurrence: None)
  Receive Date: 20110328
  Receipt Date: 20110316
  Transmission Date: 20110831
  Serious: Yes (Hospitalization)
  Sender: FDA-Public Use
  Company Number: CA-ELI_LILLY_AND_COMPANY-CA201103005695

PATIENT
  Age: 68 Year
  Sex: Female

DRUGS (24)
  1. RAMIPRIL [Concomitant]
     Route: 065
  2. CALCIUM [Concomitant]
     Dosage: 500 MG, UNK
     Route: 065
  3. SULFATRIM [Concomitant]
     Route: 065
  4. MIRTAZAPINE [Concomitant]
     Route: 065
  5. LYRICA [Concomitant]
     Route: 065
  6. FOLIC ACID [Concomitant]
     Route: 065
  7. PREDNISONE [Concomitant]
     Dosage: 5 MG, UNK
     Route: 065
  8. HYDROQUININE [Concomitant]
     Route: 065
  9. FENTANYL [Concomitant]
     Route: 065
  10. SPIRIVA [Concomitant]
     Route: 065
  11. FORTEO [Suspect]
     Dosage: 20 UG, QD
     Route: 058
     Dates: start: 20090303
  12. DOMPERIDONE [Concomitant]
     Route: 065
  13. SINGULAIR [Concomitant]
     Route: 065
  14. SYNTHROID [Concomitant]
     Route: 065
  15. ADVAIR DISKUS 100/50 [Concomitant]
     Route: 065
  16. VIT B COMPLEX [Concomitant]
     Route: 065
  17. FORTEO [Suspect]
     Indication: OSTEOPOROSIS
     Dosage: 20 UG, QD
     Route: 058
     Dates: start: 20080520, end: 20080701
  18. NAPROXEN [Concomitant]
     Route: 065
  19. OMEGA 3-6-9 [Concomitant]
     Route: 065
  20. FLUOXETINE [Concomitant]
     Route: 065
  21. OMEPRAZOLE [Concomitant]
     Route: 065
  22. VITAMIN D [Concomitant]
     Route: 065
  23. METHOTREXATE [Concomitant]
     Route: 065
  24. MSIR [Concomitant]
     Dosage: 10 MG, UNK
     Route: 065

REACTIONS (3)
  - GAIT DISTURBANCE [None]
  - ARTHRALGIA [None]
  - FRACTURE [None]
